FAERS Safety Report 8571595-1 (Version None)
Quarter: 2012Q3

REPORT INFORMATION
  Report Type: 
  Country: None (occurrence: None)
  Receive Date: 20120806
  Receipt Date: 20120727
  Transmission Date: 20120928
  Serious: No
  Sender: FDA-Public Use
  Company Number: US-JNJFOC-20120800554

PATIENT
  Sex: Male

DRUGS (4)
  1. TRAMADOL HCL [Concomitant]
     Indication: ARTHRALGIA
     Route: 048
  2. REMICADE [Suspect]
     Indication: COLITIS ULCERATIVE
     Route: 042
     Dates: start: 20111101
  3. REMICADE [Suspect]
     Route: 042
     Dates: start: 20091201, end: 20111001
  4. AZOTHIOPRINE [Concomitant]
     Indication: COLITIS ULCERATIVE
     Route: 048

REACTIONS (1)
  - HERPES ZOSTER [None]
